FAERS Safety Report 17865543 (Version 1)
Quarter: 2020Q2

REPORT INFORMATION
  Report Type: Spontaneous
  Country: SE (occurrence: SE)
  Receive Date: 20200605
  Receipt Date: 20200605
  Transmission Date: 20200714
  Serious: Yes (Other)
  Sender: FDA-Public Use
  Company Number: SE-PFIZER INC-2020217576

PATIENT
  Sex: Female

DRUGS (1)
  1. PROVERA [Suspect]
     Active Substance: MEDROXYPROGESTERONE ACETATE
     Indication: GENITAL HAEMORRHAGE
     Dosage: UNK

REACTIONS (6)
  - Rash [Unknown]
  - Hypersensitivity [Unknown]
  - Oropharyngeal blistering [Unknown]
  - Oropharyngeal discomfort [Unknown]
  - Intentional product misuse [Unknown]
  - Foreign body in throat [Unknown]

NARRATIVE: CASE EVENT DATE: 202005
